FAERS Safety Report 10053266 (Version 2)
Quarter: 2014Q2

REPORT INFORMATION
  Report Type: Report from Study
  Country: US (occurrence: US)
  Receive Date: 20140402
  Receipt Date: 20140402
  Transmission Date: 20141212
  Serious: Yes (Other)
  Sender: FDA-Public Use
  Company Number: PHEH2014US000594

PATIENT
  Age: 53 Year
  Sex: Female
  Weight: 81.63 kg

DRUGS (1)
  1. GILENYA [Suspect]
     Indication: MULTIPLE SCLEROSIS
     Dosage: 0.5 MG, QD
     Route: 048
     Dates: start: 20131125

REACTIONS (20)
  - Glaucoma [Not Recovered/Not Resolved]
  - Chest discomfort [Not Recovered/Not Resolved]
  - Pulmonary congestion [Not Recovered/Not Resolved]
  - Secretion discharge [Unknown]
  - Weight decreased [Unknown]
  - Multiple sclerosis relapse [Not Recovered/Not Resolved]
  - Feeling abnormal [Not Recovered/Not Resolved]
  - Balance disorder [Not Recovered/Not Resolved]
  - Poor quality sleep [Not Recovered/Not Resolved]
  - Pain [Recovering/Resolving]
  - Hypoaesthesia [Recovering/Resolving]
  - Optic neuritis [Not Recovered/Not Resolved]
  - Fatigue [Not Recovered/Not Resolved]
  - Stress [Unknown]
  - Aphasia [Unknown]
  - Asthenia [Not Recovered/Not Resolved]
  - Hemiparesis [Not Recovered/Not Resolved]
  - Memory impairment [Not Recovered/Not Resolved]
  - Laryngitis [Not Recovered/Not Resolved]
  - Cognitive disorder [Not Recovered/Not Resolved]
